FAERS Safety Report 9238201 (Version 1)
Quarter: 2013Q2

REPORT INFORMATION
  Report Type: Spontaneous
  Country: NL (occurrence: None)
  Receive Date: 20130416
  Receipt Date: 20130416
  Transmission Date: 20140414
  Serious: Yes (Death, Hospitalization)
  Sender: FDA-Public Use
  Company Number: 147486

PATIENT
  Age: 74 Year
  Sex: Female

DRUGS (1)
  1. ADRIAMYCIN (DOXORUBICIN) INJ. USP 10MG/5ML - BEDFORD LABS, INC. [Suspect]
     Indication: DIFFUSE LARGE B-CELL LYMPHOMA

REACTIONS (2)
  - Progressive multifocal leukoencephalopathy [None]
  - Weight decreased [None]
